FAERS Safety Report 6725067-7 (Version None)
Quarter: 2010Q2

REPORT INFORMATION
  Report Type: 
  Country: None (occurrence: None)
  Receive Date: 20100514
  Receipt Date: 20100429
  Transmission Date: 20101027
  Serious: Yes (Other)
  Sender: FDA-Public Use
  Company Number: US-BAYER-200936242NA

PATIENT
  Age: 73 Year
  Sex: Male
  Weight: 88 kg

DRUGS (13)
  1. MAGNEVIST [Suspect]
     Indication: NUCLEAR MAGNETIC RESONANCE IMAGING
     Dosage: NO RADIOLOGY REPORT RECEIVED WITH THIS SET OF RECORDS
     Dates: start: 19890111, end: 19890111
  2. MAGNEVIST [Suspect]
     Dosage: NO RADIOLOGY REPORT RECEIVED FOR THIS DATE; RADIOLOGY REPORT 11 JAN 1989 HAS NO MENTION OF CONTRAST
     Dates: start: 19890112, end: 19890112
  3. MAGNEVIST [Suspect]
     Dates: start: 19990916, end: 19990916
  4. MAGNEVIST [Suspect]
     Dosage: NO RADIOLOGY REPORT RECEIVED FOR THIS DATE
     Dates: start: 19990917, end: 19990917
  5. OMNISCAN [Suspect]
     Indication: NUCLEAR MAGNETIC RESONANCE IMAGING
  6. UNSPECIFIED GADOLINIUM BASED CONTRAST AGENT [Suspect]
     Indication: ANGIOGRAM
     Dates: start: 19990831, end: 19990831
  7. PLAVIX [Concomitant]
  8. METOPROLOL TARTRATE [Concomitant]
  9. AMLODIPINE [Concomitant]
  10. PLAVIX [Concomitant]
  11. ASPIRIN [Concomitant]
  12. CALCIUM CARBONATE [Concomitant]
  13. PREDNISONE [Concomitant]

REACTIONS (21)
  - BURNING SENSATION [None]
  - DEFORMITY [None]
  - HYPOAESTHESIA [None]
  - JOINT INJURY [None]
  - JOINT RANGE OF MOTION DECREASED [None]
  - MOBILITY DECREASED [None]
  - MUSCLE SPASMS [None]
  - MUSCULAR WEAKNESS [None]
  - NEPHROGENIC SYSTEMIC FIBROSIS [None]
  - OEDEMA PERIPHERAL [None]
  - PAIN [None]
  - PAIN IN EXTREMITY [None]
  - PAIN OF SKIN [None]
  - PRURITUS [None]
  - PRURITUS GENERALISED [None]
  - SKIN DISCOLOURATION [None]
  - SKIN FIBROSIS [None]
  - SKIN LESION [None]
  - SKIN NODULE [None]
  - SKIN TIGHTNESS [None]
  - XEROSIS [None]
